FAERS Safety Report 7233525-4 (Version None)
Quarter: 2011Q1

REPORT INFORMATION
  Report Type: 
  Country: None (occurrence: None)
  Receive Date: 20110119
  Receipt Date: 20110104
  Transmission Date: 20110831
  Serious: Yes (Other)
  Sender: FDA-Public Use
  Company Number: AU-GENENTECH-312251

PATIENT
  Sex: Female

DRUGS (2)
  1. LUCENTIS [Suspect]
     Dosage: 0.05 ML, UNK
     Route: 031
     Dates: start: 20101220
  2. LUCENTIS [Suspect]
     Indication: MACULAR DEGENERATION
     Dosage: 0.05 ML, UNK
     Route: 031

REACTIONS (3)
  - VITREOUS FLOATERS [None]
  - BLINDNESS UNILATERAL [None]
  - EYE INFECTION [None]
